FAERS Safety Report 6073371-0 (Version None)
Quarter: 2009Q1

REPORT INFORMATION
  Report Type: 
  Country: None (occurrence: None)
  Receive Date: 20090206
  Receipt Date: 20090128
  Transmission Date: 20090719
  Serious: Yes (Hospitalization)
  Sender: FDA-Public Use
  Company Number: OSCN-NO-0902S-0048

PATIENT
  Age: 70 Year
  Sex: Female
  Weight: 52 kg

DRUGS (2)
  1. OMNISCAN [Suspect]
     Indication: PYRAMIDAL TRACT SYNDROME
     Dosage: 15 ML, SINGLE DOSE, I.A.
     Route: 013
     Dates: start: 20090128, end: 20090128
  2. TAMOXIFEN CITRATE [Concomitant]

REACTIONS (5)
  - ARTERIAL SPASM [None]
  - ERYTHEMA [None]
  - INCORRECT ROUTE OF DRUG ADMINISTRATION [None]
  - PAIN [None]
  - PALLOR [None]
